FAERS Safety Report 5536563-2 (Version None)
Quarter: 2007Q4

REPORT INFORMATION
  Report Type: 
  Country: None (occurrence: None)
  Receive Date: 20071204
  Receipt Date: 20071115
  Transmission Date: 20080405
  Serious: Yes (Hospitalization)
  Sender: FDA-Public Use
  Company Number: DSA_30915_2007

PATIENT
  Age: 61 Year
  Sex: Male

DRUGS (3)
  1. WYPAX (WYPAX - LORAZEPAM) [Suspect]
     Indication: DEPRESSION
     Dosage: DF ORAL
     Route: 048
  2. CHLORPROMAZINE HYDROCHLORIDE [Suspect]
     Indication: DEPRESSION
     Dosage: DF ORAL
     Route: 048
  3. PROMETHAZINE HYDROCHLORIDE TAB [Suspect]
     Dosage: DF ORAL
     Route: 048

REACTIONS (10)
  - BLOOD PRESSURE DECREASED [None]
  - CARDIAC MURMUR [None]
  - DILATATION ATRIAL [None]
  - DILATATION VENTRICULAR [None]
  - JAPAN COMA SCALE ABNORMAL [None]
  - PALPITATIONS [None]
  - PULMONARY ARTERY THROMBOSIS [None]
  - PULMONARY EMBOLISM [None]
  - RESPIRATORY FAILURE [None]
  - TRICUSPID VALVE INCOMPETENCE [None]
